FAERS Safety Report 18254676 (Version 3)
Quarter: 2022Q2

REPORT INFORMATION
  Report Type: Report from Study
  Country: None (occurrence: US)
  Receive Date: 20200910
  Receipt Date: 20220415
  Transmission Date: 20220720
  Serious: Yes (Hospitalization)
  Sender: FDA-Public Use
  Company Number: US-AKCEA THERAPEUTICS-2020IS001322

PATIENT
  Age: 70 Year
  Sex: Male

DRUGS (3)
  1. TEGSEDI [Suspect]
     Active Substance: INOTERSEN SODIUM
     Indication: Hereditary neuropathic amyloidosis
     Route: 058
  2. TEGSEDI [Suspect]
     Active Substance: INOTERSEN SODIUM
     Indication: Polyneuropathy
  3. DEVICE [Suspect]
     Active Substance: DEVICE

REACTIONS (10)
  - Surgery [Unknown]
  - Urine protein/creatinine ratio increased [Unknown]
  - Protein total increased [Unknown]
  - Urine ketone body present [Unknown]
  - Protein urine present [Unknown]
  - Bacterial test positive [Unknown]
  - Urinary casts [Unknown]
  - General physical condition abnormal [Unknown]
  - White blood cells urine positive [Unknown]
  - Laboratory test abnormal [Unknown]

NARRATIVE: CASE EVENT DATE: 20200901
